FAERS Safety Report 5122408-1 (Version None)
Quarter: 2006Q4

REPORT INFORMATION
  Report Type: 
  Country: None (occurrence: None)
  Receive Date: 20061004
  Receipt Date: 20060925
  Transmission Date: 20070319
  Serious: Yes (Other)
  Sender: FDA-Public Use
  Company Number: 230370

PATIENT
  Sex: Female

DRUGS (1)
  1. AVASTIN [Suspect]
     Indication: MACULAR OEDEMA
     Dosage: INTRAVITREAL

REACTIONS (8)
  - ARTHRALGIA [None]
  - BLOOD PRESSURE INCREASED [None]
  - FAECES DISCOLOURED [None]
  - GASTRITIS [None]
  - HEADACHE [None]
  - MALAISE [None]
  - UPPER RESPIRATORY TRACT INFECTION [None]
  - VERTIGO [None]
